FAERS Safety Report 18501091 (Version 2)
Quarter: 2022Q3

REPORT INFORMATION
  Report Type: Spontaneous
  Country: JP (occurrence: JP)
  Receive Date: 20201113
  Receipt Date: 20220713
  Transmission Date: 20221027
  Serious: Yes (Other)
  Sender: FDA-Public Use
  Company Number: JP-GSKNCCC-CASE-01079624_AE-36570

PATIENT

DRUGS (1)
  1. REQUIP [Suspect]
     Active Substance: ROPINIROLE HYDROCHLORIDE
     Indication: Parkinson^s disease
     Dosage: 8 MG, QD
     Route: 048

REACTIONS (3)
  - Amyotrophic lateral sclerosis [Unknown]
  - Disease progression [Unknown]
  - Dysphagia [Not Recovered/Not Resolved]
